FAERS Safety Report 4865653-2 (Version None)
Quarter: 2005Q4

REPORT INFORMATION
  Report Type: 
  Country: None (occurrence: None)
  Receive Date: 20051223
  Receipt Date: 20051111
  Transmission Date: 20060501
  Serious: Yes (Hospitalization)
  Sender: FDA-Public Use
  Company Number: US-ABBOTT-05P-163-0317216-00

PATIENT
  Sex: Female
  Weight: 90.346 kg

DRUGS (11)
  1. HUMIRA [Suspect]
     Indication: RHEUMATOID ARTHRITIS
     Route: 058
  2. ESTROGENS CONJUGATED [Concomitant]
     Indication: HORMONE REPLACEMENT THERAPY
     Dates: start: 19970101
  3. PANTOPRAZOLE [Concomitant]
     Indication: GASTROOESOPHAGEAL REFLUX DISEASE
     Dates: start: 20021201
  4. LEVOTHYROXINE SODIUM [Concomitant]
     Indication: HYPOTHYROIDISM
     Dates: start: 20020918
  5. ARTHROTEC [Concomitant]
     Indication: RHEUMATOID ARTHRITIS
     Dates: start: 20020522
  6. HYDROXYCHLOROQUINE PHOSPHATE [Concomitant]
     Indication: RHEUMATOID ARTHRITIS
     Dates: start: 20011219
  7. METHOTREXATE [Concomitant]
     Indication: RHEUMATOID ARTHRITIS
     Dates: start: 20031118
  8. FOLINIC ACID [Concomitant]
     Indication: VITAMIN SUPPLEMENTATION
     Dates: start: 20040921
  9. ULTRACET [Concomitant]
     Indication: ARTHRALGIA
     Dates: start: 20020320
  10. IMODIUM A-D [Concomitant]
     Indication: DIARRHOEA
  11. NAPROXEN SODIUM [Concomitant]
     Indication: ARTHRALGIA
     Dates: start: 20010101

REACTIONS (1)
  - GASTRIC PERFORATION [None]
